FAERS Safety Report 13323180 (Version 2)
Quarter: 2017Q2

REPORT INFORMATION
  Report Type: Spontaneous
  Country: JP (occurrence: JP)
  Receive Date: 20170309
  Receipt Date: 20170419
  Transmission Date: 20170830
  Serious: Yes (Death, Hospitalization)
  Sender: FDA-Public Use
  Company Number: JP-ELI_LILLY_AND_COMPANY-JP201703002896

PATIENT
  Age: 68 Year
  Sex: Male
  Weight: 61 kg

DRUGS (6)
  1. CYRAMZA [Suspect]
     Active Substance: RAMUCIRUMAB
     Indication: ADENOCARCINOMA GASTRIC
     Dosage: 460 MG, OTHER
     Route: 042
     Dates: start: 20170201, end: 20170301
  2. MAGMITT [Concomitant]
     Active Substance: MAGNESIUM OXIDE
     Dosage: UNK
     Route: 048
  3. OXYCONTIN [Concomitant]
     Active Substance: OXYCODONE HYDROCHLORIDE
     Indication: PAIN
     Dosage: UNK
     Route: 048
     Dates: start: 201702
  4. PACLITAXEL. [Concomitant]
     Active Substance: PACLITAXEL
     Indication: ADENOCARCINOMA GASTRIC
     Dosage: 120 MG, OTHER
     Route: 042
     Dates: start: 20170201, end: 20170301
  5. OXINORM                            /00045603/ [Concomitant]
     Active Substance: OXYCODONE HYDROCHLORIDE
     Indication: PAIN
     Dosage: UNK
     Route: 048
  6. NOVAMIN                            /00013303/ [Concomitant]
     Dosage: UNK
     Route: 048

REACTIONS (2)
  - Shock haemorrhagic [Fatal]
  - Tumour haemorrhage [Fatal]

NARRATIVE: CASE EVENT DATE: 20170302
